FAERS Safety Report 17580131 (Version 5)
Quarter: 2025Q1

REPORT INFORMATION
  Report Type: Spontaneous
  Country: US (occurrence: US)
  Receive Date: 20200325
  Receipt Date: 20250116
  Transmission Date: 20250409
  Serious: No
  Sender: PFIZER
  Company Number: US-PFIZER INC-2020122582

PATIENT
  Age: 70 Year
  Sex: Female
  Weight: 68.49 kg

DRUGS (1)
  1. NIFEDIPINE [Suspect]
     Active Substance: NIFEDIPINE
     Indication: Hypertension

REACTIONS (3)
  - Pruritus [Recovered/Resolved]
  - Feeling abnormal [Unknown]
  - Muscle spasms [Unknown]
